FAERS Safety Report 7680629-8 (Version None)
Quarter: 2011Q3

REPORT INFORMATION
  Report Type: 
  Country: None (occurrence: None)
  Receive Date: 20110812
  Receipt Date: 20110802
  Transmission Date: 20111222
  Serious: Yes (Hospitalization)
  Sender: FDA-Public Use
  Company Number: NL-ROCHE-790470

PATIENT
  Sex: Female

DRUGS (8)
  1. CAPECITABINE [Suspect]
     Dosage: DOSE AND FREQUENCY NOT PROVIDED
     Route: 048
  2. PREDNISOLONE [Concomitant]
     Dates: start: 20110222
  3. TIOTROPIUM [Concomitant]
     Dates: start: 20110128
  4. TRAMADOL HYDROCHLORIDE [Concomitant]
     Dates: start: 20110120
  5. BEVACIZUMAB [Suspect]
     Dosage: LAST DOSE PRIOR TO SAE: 11 FEBRUARY 2011, FREQUENCY NOT PROVIDED
     Route: 042
     Dates: start: 20110128
  6. DOXORUBICIN HYDROCHLORIDE [Suspect]
     Dosage: DOSE AND FREQUENCY NOT PROVIDED
     Route: 042
  7. SALMETEROL [Concomitant]
     Dosage: DRUG REPORTED AS SALMETEROL/FLUTICASON
     Dates: start: 20110128
  8. PACLITAXEL [Suspect]
     Dosage: LAST DOSE PRIOR TO SAE: 11 FEBRUARY 2011, FREQUENCY NOT PROVIDED
     Route: 042
     Dates: start: 20110128

REACTIONS (1)
  - LYMPHANGIOSIS CARCINOMATOSA [None]
